FAERS Safety Report 14778602 (Version 2)
Quarter: 2018Q2

REPORT INFORMATION
  Report Type: Spontaneous
  Country: US (occurrence: PE)
  Receive Date: 20180419
  Receipt Date: 20180424
  Transmission Date: 20180711
  Serious: Yes (Hospitalization)
  Sender: FDA-Public Use
  Company Number: US-SUNOVION-2018SUN001489

PATIENT
  Age: 78 Year
  Sex: Female

DRUGS (5)
  1. INDACATEROL AND GLYCOPYRROLATE [Suspect]
     Active Substance: GLYCOPYRROLATE\INDACATEROL MALEATE
     Dosage: 1 DF, QD
     Route: 055
     Dates: start: 201802
  2. ENALAPRIL [Concomitant]
     Active Substance: ENALAPRIL
  3. INDACATEROL AND GLYCOPYRROLATE [Suspect]
     Active Substance: GLYCOPYRROLATE\INDACATEROL MALEATE
     Indication: ASTHMA
     Dosage: 1 DF, QD
     Route: 055
     Dates: start: 201710, end: 20180130
  4. CLONAZEPAM. [Concomitant]
     Active Substance: CLONAZEPAM
  5. SALMETEROL [Concomitant]
     Active Substance: SALMETEROL

REACTIONS (3)
  - Respiratory arrest [Recovered/Resolved]
  - Product use in unapproved indication [Unknown]
  - Discomfort [Unknown]

NARRATIVE: CASE EVENT DATE: 20180130
